FAERS Safety Report 7532274-2 (Version None)
Quarter: 2011Q2

REPORT INFORMATION
  Report Type: 
  Country: None (occurrence: None)
  Receive Date: 20110608
  Receipt Date: 20110325
  Transmission Date: 20111010
  Serious: No
  Sender: FDA-Public Use
  Company Number: US-TEVA-273363USA

PATIENT
  Sex: Female

DRUGS (2)
  1. ENJUVIA [Suspect]
  2. RECREATE FAT BURNER [Suspect]

REACTIONS (1)
  - DRUG INEFFECTIVE [None]
